FAERS Safety Report 6336456-7 (Version None)
Quarter: 2009Q3

REPORT INFORMATION
  Report Type: 
  Country: None (occurrence: None)
  Receive Date: 20090901
  Receipt Date: 20090826
  Transmission Date: 20100115
  Serious: Yes (Other)
  Sender: FDA-Public Use
  Company Number: A0737209A

PATIENT
  Age: 63 Year
  Sex: Female

DRUGS (4)
  1. ADVAIR HFA [Suspect]
     Dosage: 1PUFF TWICE PER DAY
     Route: 055
     Dates: end: 20090701
  2. TRICOR [Concomitant]
  3. VITAMINS [Concomitant]
  4. LEVOTHYROXINE SODIUM [Concomitant]

REACTIONS (7)
  - ALVEOLITIS ALLERGIC [None]
  - APHONIA [None]
  - CONDITION AGGRAVATED [None]
  - COUGH [None]
  - HAEMOPTYSIS [None]
  - INCREASED UPPER AIRWAY SECRETION [None]
  - PULMONARY HAEMORRHAGE [None]
